FAERS Safety Report 5903497-0 (Version None)
Quarter: 2008Q3

REPORT INFORMATION
  Report Type: 
  Country: None (occurrence: None)
  Receive Date: 20080919
  Receipt Date: 20080919
  Transmission Date: 20090109
  Serious: No
  Sender: FDA-Public Use
  Company Number: US-WYE-H05587208

PATIENT
  Age: 68 Year
  Sex: Male

DRUGS (2)
  1. PRISTIQ [Suspect]
     Dosage: 50 MG 1X PER 1 DAY, ORAL
     Route: 048
     Dates: start: 20080701
  2. LEXAPRO [Concomitant]

REACTIONS (3)
  - CONDITION AGGRAVATED [None]
  - POLLAKIURIA [None]
  - URINARY RETENTION [None]
